FAERS Safety Report 6912123-3 (Version None)
Quarter: 2010Q3

REPORT INFORMATION
  Report Type: 
  Country: None (occurrence: None)
  Receive Date: 20100806
  Receipt Date: 20080225
  Transmission Date: 20110219
  Serious: No
  Sender: FDA-Public Use
  Company Number: US-PFIZER INC-2008015409

PATIENT
  Sex: Female
  Weight: 57.727 kg

DRUGS (4)
  1. DETROL [Suspect]
     Indication: HYPERTONIC BLADDER
     Dates: start: 20061001
  2. ALL OTHER THERAPEUTIC PRODUCTS [Concomitant]
  3. ZELAPAR [Concomitant]
     Indication: PARKINSON'S DISEASE
  4. AMBIEN [Concomitant]
     Indication: SLEEP DISORDER

REACTIONS (1)
  - DRUG INEFFECTIVE [None]
